FAERS Safety Report 23133913 (Version 1)
Quarter: 2023Q4

REPORT INFORMATION
  Report Type: Spontaneous
  Country: US (occurrence: US)
  Receive Date: 20231101
  Receipt Date: 20231101
  Transmission Date: 20240109
  Serious: No
  Sender: FDA-Public Use
  Company Number: US-GLENMARK PHARMACEUTICALS-2023GMK078451

PATIENT

DRUGS (1)
  1. BETAMETHASONE DIPROPIONATE [Suspect]
     Active Substance: BETAMETHASONE DIPROPIONATE
     Indication: Rash
     Dosage: UNK
     Route: 065
     Dates: start: 20220719

REACTIONS (3)
  - Poor quality product administered [Unknown]
  - Product leakage [Unknown]
  - Product container issue [Unknown]

NARRATIVE: CASE EVENT DATE: 20220719
